FAERS Safety Report 7506808-8 (Version None)
Quarter: 2011Q2

REPORT INFORMATION
  Report Type: 
  Country: None (occurrence: None)
  Receive Date: 20110526
  Receipt Date: 20110401
  Transmission Date: 20111010
  Serious: Yes (Death, Hospitalization)
  Sender: FDA-Public Use
  Company Number: A0921853A

PATIENT
  Age: 67 Year
  Sex: Female
  Weight: 60.3 kg

DRUGS (14)
  1. CARDIZEM [Concomitant]
     Dosage: 15MG FOUR TIMES PER DAY
  2. FERROUS SULFATE TAB [Concomitant]
     Dosage: 325MG TWICE PER DAY
  3. PROTONIX [Concomitant]
     Dosage: 40MG TWICE PER DAY
  4. ACETAMINOPHEN [Concomitant]
     Dosage: 325MG AS REQUIRED
  5. BENADRYL [Concomitant]
     Dosage: 125MG SIX TIMES PER DAY
  6. ANUSOL HC [Concomitant]
     Dosage: 25MG AS REQUIRED
  7. MISOPROSTOL [Concomitant]
     Dosage: 200MG FOUR TIMES PER DAY
  8. ATENOLOL [Concomitant]
     Dosage: 25MG TWICE PER DAY
  9. FUROSEMIDE [Concomitant]
     Dosage: 80MG TWICE PER DAY
  10. FLOLAN [Suspect]
     Dates: start: 20081201
  11. SPIRONOLACTONE [Concomitant]
     Dosage: 25MG TWICE PER DAY
  12. M.V.I. [Concomitant]
     Dosage: 1TAB PER DAY
  13. BACITRACIN [Concomitant]
  14. PREDNISONE [Concomitant]

REACTIONS (8)
  - PH BODY FLUID [None]
  - DEATH [None]
  - GASTROINTESTINAL HAEMORRHAGE [None]
  - PROCEDURAL COMPLICATION [None]
  - PULMONARY HAEMORRHAGE [None]
  - ANAEMIA [None]
  - CEREBRAL HAEMORRHAGE [None]
  - GENERAL PHYSICAL HEALTH DETERIORATION [None]
